FAERS Safety Report 7520889-7 (Version None)
Quarter: 2011Q2

REPORT INFORMATION
  Report Type: 
  Country: None (occurrence: None)
  Receive Date: 20110603
  Receipt Date: 20101119
  Transmission Date: 20111010
  Serious: Yes (Death, Hospitalization)
  Sender: FDA-Public Use
  Company Number: UY-BAYER-201020937LA

PATIENT
  Age: 64 Year
  Sex: Male
  Weight: 63 kg

DRUGS (8)
  1. ASCORBIC ACID [Concomitant]
     Indication: ANAEMIA
     Route: 048
     Dates: start: 20090101, end: 20101118
  2. SERTRALINE HYDROCHLORIDE [Concomitant]
     Indication: ANTIDEPRESSANT THERAPY
     Route: 048
     Dates: start: 20100301, end: 20101118
  3. IRON SULFATETHIAMIN COMPOUND TAB [Concomitant]
     Indication: ANAEMIA
     Route: 048
     Dates: start: 20090101, end: 20101118
  4. NEXAVAR [Suspect]
     Route: 048
     Dates: start: 20100503
  5. TERAZOSIN HCL [Concomitant]
     Indication: BENIGN PROSTATIC HYPERPLASIA
     Route: 048
     Dates: start: 20100728, end: 20101118
  6. OMEPRAZOLE [Concomitant]
     Indication: PROPHYLAXIS
     Dosage: 40 MG (DAILY DOSE), , ORAL
     Route: 048
     Dates: start: 20101101, end: 20101118
  7. NEXAVAR [Suspect]
     Indication: HEPATIC NEOPLASM MALIGNANT
     Dosage: 800 MG (DAILY DOSE), BID, ORAL
     Route: 048
     Dates: end: 20101118
  8. FLUTICASONE PROPIONATE [Concomitant]
     Indication: CHRONIC OBSTRUCTIVE PULMONARY DISEASE
     Route: 055
     Dates: start: 20080101, end: 20101118

REACTIONS (4)
  - ABDOMINAL PAIN [None]
  - VOMITING [None]
  - DEHYDRATION [None]
  - SUDDEN DEATH [None]
